FAERS Safety Report 5645807-8 (Version None)
Quarter: 2008Q1

REPORT INFORMATION
  Report Type: 
  Country: None (occurrence: None)
  Receive Date: 20080229
  Receipt Date: 20080219
  Transmission Date: 20080703
  Serious: Yes (Hospitalization, Other)
  Sender: FDA-Public Use
  Company Number: AT-PFIZER INC-2008006131

PATIENT
  Sex: Female
  Weight: 74.7 kg

DRUGS (6)
  1. CHANTIX [Suspect]
     Indication: SMOKING CESSATION THERAPY
     Route: 048
     Dates: start: 20080114, end: 20080121
  2. ALL OTHER THERAPEUTIC PRODUCTS [Concomitant]
  3. SEROPRAM [Concomitant]
  4. SPIRIVA [Concomitant]
     Route: 055
  5. SERETIDE [Concomitant]
  6. THYREX [Concomitant]
     Route: 048

REACTIONS (3)
  - DEPRESSIVE SYMPTOM [None]
  - NICOTINE DEPENDENCE [None]
  - SUICIDAL IDEATION [None]
